FAERS Safety Report 4902307-8 (Version None)
Quarter: 2006Q1

REPORT INFORMATION
  Report Type: 
  Country: None (occurrence: None)
  Receive Date: 20060202
  Receipt Date: 20060117
  Transmission Date: 20060701
  Serious: No
  Sender: FDA-Public Use
  Company Number: ACO_0211_2006

PATIENT
  Age: 12 Year
  Sex: Male

DRUGS (4)
  1. TIZANIDINE HCL [Suspect]
     Indication: MITOCHONDRIAL ENCEPHALOMYOPATHY
     Dosage: 2 MG Q3HR
  2. TEICOPLANIN [Concomitant]
  3. VANCOMYCIN [Concomitant]
  4. DICLOFENAC [Concomitant]

REACTIONS (1)
  - RENAL FAILURE ACUTE [None]
